FAERS Safety Report 10086104 (Version 2)
Quarter: 2014Q2

REPORT INFORMATION
  Report Type: Spontaneous
  Country: US (occurrence: US)
  Receive Date: 20140418
  Receipt Date: 20140423
  Transmission Date: 20141212
  Serious: Yes (Other)
  Sender: FDA-Public Use
  Company Number: US-FRI-1000066548

PATIENT
  Age: 32 Year
  Sex: Female

DRUGS (6)
  1. VIIBRYD [Suspect]
     Indication: DEPRESSION
     Dosage: 10 MG
     Route: 048
     Dates: start: 20140325, end: 20140328
  2. WELLBUTRIN [Concomitant]
     Indication: DEPRESSION
  3. ZYRTEC [Concomitant]
  4. ALBUTEROL [Concomitant]
     Indication: ASTHMA
  5. NASONEX [Concomitant]
  6. FIORICET [Concomitant]

REACTIONS (1)
  - Generalised tonic-clonic seizure [Recovered/Resolved]
